FAERS Safety Report 25648298 (Version 1)
Quarter: 2025Q3

REPORT INFORMATION
  Report Type: Spontaneous
  Country: MK (occurrence: MK)
  Receive Date: 20250806
  Receipt Date: 20250806
  Transmission Date: 20251020
  Serious: Yes (Other)
  Sender: ROCHE
  Company Number: MK-ROCHE-10000353147

PATIENT
  Age: 59 Year
  Sex: Female

DRUGS (2)
  1. TECENTRIQ [Suspect]
     Active Substance: ATEZOLIZUMAB
     Indication: Non-small cell lung cancer metastatic
     Route: 042
     Dates: start: 20250427
  2. TECENTRIQ [Suspect]
     Active Substance: ATEZOLIZUMAB
     Indication: Non-small cell lung cancer metastatic
     Route: 058
     Dates: start: 20250721, end: 20250721

REACTIONS (3)
  - Fatigue [Recovered/Resolved]
  - Hypotension [Recovered/Resolved]
  - Throat irritation [Recovered/Resolved]

NARRATIVE: CASE EVENT DATE: 20250721
